FAERS Safety Report 20008396 (Version 1)
Quarter: 2021Q4

REPORT INFORMATION
  Report Type: Spontaneous
  Country: US (occurrence: US)
  Receive Date: 20211028
  Receipt Date: 20211028
  Transmission Date: 20220303
  Serious: Yes (Death)
  Sender: FDA-Public Use
  Company Number: US-BAYER-2021A232294

PATIENT
  Sex: Male

DRUGS (1)
  1. LOTRIMIN AF ANTIFUNGAL [Suspect]
     Active Substance: MICONAZOLE NITRATE
     Dosage: UNK (USED IT ALMOST WVERY DAY DURING SUMMERTIME)
     Route: 061

REACTIONS (3)
  - Neoplasm malignant [Fatal]
  - Skin cancer [Fatal]
  - Incorrect product administration duration [None]
